FAERS Safety Report 25603480 (Version 1)
Quarter: 2025Q3

REPORT INFORMATION
  Report Type: Spontaneous
  Country: JP (occurrence: JP)
  Receive Date: 20250724
  Receipt Date: 20250724
  Transmission Date: 20251021
  Serious: Yes (Other)
  Sender: NOVARTIS
  Company Number: JP-002147023-NVSJ2025JP007194

PATIENT
  Age: 77 Year
  Sex: Female

DRUGS (2)
  1. ELTROMBOPAG OLAMINE [Suspect]
     Active Substance: ELTROMBOPAG OLAMINE
     Indication: Aplastic anaemia
     Dosage: 25 MG, QD
     Route: 048
     Dates: start: 20250619, end: 20250703
  2. NEORAL [Concomitant]
     Active Substance: CYCLOSPORINE
     Indication: Aplastic anaemia
     Dosage: 180 MG, BID
     Route: 048
     Dates: start: 20250513

REACTIONS (2)
  - Myalgia [Recovering/Resolving]
  - Back pain [Recovering/Resolving]

NARRATIVE: CASE EVENT DATE: 20250620
